FAERS Safety Report 4847637-3 (Version None)
Quarter: 2005Q4

REPORT INFORMATION
  Report Type: 
  Country: None (occurrence: None)
  Receive Date: 20051205
  Receipt Date: 20051122
  Transmission Date: 20060501
  Serious: Yes (Other)
  Sender: FDA-Public Use
  Company Number: 2005156954

PATIENT
  Age: 25 Year
  Sex: Female
  Weight: 60 kg

DRUGS (5)
  1. ZYVOX [Suspect]
     Indication: INFECTION
     Dosage: ORAL
     Route: 048
     Dates: start: 20051030, end: 20051114
  2. SOLU-MEDROL [Suspect]
     Indication: ILL-DEFINED DISORDER
  3. CYCLOPHOSPHAMIDE [Concomitant]
  4. TREATMENTS (ALL OTHER THERAPEUTIC PRODUCTS) [Concomitant]
  5. CIPROFLOXACINE (CIPROFLOXACIN) [Concomitant]

REACTIONS (10)
  - ABDOMINAL PAIN [None]
  - CATHETER RELATED INFECTION [None]
  - GLOMERULONEPHRITIS [None]
  - HYPERCALCAEMIA [None]
  - METABOLIC ACIDOSIS [None]
  - PYREXIA [None]
  - REFUSAL OF TREATMENT BY PATIENT [None]
  - RENAL FAILURE [None]
  - SEPSIS [None]
  - VOMITING [None]
